FAERS Safety Report 18518650 (Version 1)
Quarter: 2020Q4

REPORT INFORMATION
  Report Type: Spontaneous
  Country: DO (occurrence: DO)
  Receive Date: 20201118
  Receipt Date: 20201118
  Transmission Date: 20210114
  Serious: Yes (Hospitalization)
  Sender: FDA-Public Use
  Company Number: DO-DSJP-DSE-2020-134911

PATIENT
  Age: 43 Year
  Sex: Male

DRUGS (2)
  1. LIXIANA 60MG [Suspect]
     Active Substance: EDOXABAN TOSYLATE
     Indication: EMBOLISM
     Dosage: 60 MG, QD
     Route: 048
     Dates: start: 20200907, end: 20200930
  2. FLUIMUCIL [Concomitant]
     Active Substance: ACETYLCYSTEINE
     Indication: COVID-19
     Dosage: 600 MG, QD
     Route: 048
     Dates: start: 202007

REACTIONS (4)
  - Chest pain [Recovered/Resolved]
  - Dyspnoea [Recovered/Resolved]
  - Cardiac disorder [Unknown]
  - Pulmonary thrombosis [Recovered/Resolved]

NARRATIVE: CASE EVENT DATE: 20200930
